FAERS Safety Report 24395481 (Version 1)
Quarter: 2024Q4

REPORT INFORMATION
  Report Type: Report from Study
  Country: US (occurrence: US)
  Receive Date: 20241004
  Receipt Date: 20241004
  Transmission Date: 20250115
  Serious: Yes (Other)
  Sender: ABBVIE
  Company Number: US-ABBVIE-5944854

PATIENT
  Age: 55 Year
  Sex: Male

DRUGS (1)
  1. SKYRIZI [Suspect]
     Active Substance: RISANKIZUMAB-RZAA
     Indication: Psoriasis
     Route: 058
     Dates: start: 20240928

REACTIONS (5)
  - Abdominal neoplasm [Not Recovered/Not Resolved]
  - Chest pain [Not Recovered/Not Resolved]
  - Neoplasm [Not Recovered/Not Resolved]
  - Hypoaesthesia [Unknown]
  - Drug ineffective [Unknown]

NARRATIVE: CASE EVENT DATE: 20240901
